FAERS Safety Report 12604397 (Version 1)
Quarter: 2016Q3

REPORT INFORMATION
  Report Type: Spontaneous
  Country: DE (occurrence: DE)
  Receive Date: 20160728
  Receipt Date: 20160728
  Transmission Date: 20161109
  Serious: Yes (Disabling)
  Sender: FDA-Public Use
  Company Number: DE-BAYER-2016-140722

PATIENT
  Age: 75 Year
  Sex: Male
  Weight: 74 kg

DRUGS (1)
  1. CIPROBAY [Suspect]
     Active Substance: CIPROFLOXACIN
     Indication: CATHETER PLACEMENT
     Dosage: 250 MG, BID
     Route: 048
     Dates: start: 20160427, end: 20160527

REACTIONS (3)
  - Tendon rupture [Not Recovered/Not Resolved]
  - Haematoma [Not Recovered/Not Resolved]
  - Oedema [Not Recovered/Not Resolved]

NARRATIVE: CASE EVENT DATE: 20160501
